FAERS Safety Report 4605777-8 (Version None)
Quarter: 2005Q1

REPORT INFORMATION
  Report Type: 
  Country: None (occurrence: None)
  Receive Date: 20050115
  Receipt Date: 20040121
  Transmission Date: 20050727
  Serious: Yes (Hospitalization)
  Sender: FDA-Public Use
  Company Number: A03200400177

PATIENT
  Sex: Female

DRUGS (1)
  1. AMBIEN [Suspect]
     Dosage: UP TO 30 PILLS IN A 24-HOUR PERIOD

REACTIONS (2)
  - DRUG ABUSER [None]
  - DRUG DEPENDENCE [None]
